FAERS Safety Report 9354752 (Version 1)
Quarter: 2013Q2

REPORT INFORMATION
  Report Type: Report from Study
  Country: BG (occurrence: BG)
  Receive Date: 20130619
  Receipt Date: 20130619
  Transmission Date: 20140414
  Serious: Yes (Hospitalization)
  Sender: FDA-Public Use
  Company Number: BG-MERCK-1112USA03455

PATIENT
  Age: 73 Year
  Sex: Female

DRUGS (12)
  1. TAFLUPROST [Suspect]
     Indication: OPEN ANGLE GLAUCOMA
     Dosage: 1 DROP X 1
     Route: 047
     Dates: start: 20110823
  2. TAFLUPROST [Suspect]
     Indication: OCULAR HYPERTENSION
  3. TIMOLOL MALEATE [Suspect]
     Indication: OPEN ANGLE GLAUCOMA
     Dosage: 1 DROP X 2
     Route: 047
     Dates: start: 20110823
  4. TIMOLOL MALEATE [Suspect]
     Indication: OCULAR HYPERTENSION
  5. FELOHEXAL [Concomitant]
     Dosage: 5 MG, QD
     Route: 048
     Dates: start: 20070122
  6. RASOLTAN [Concomitant]
     Dosage: 50 MG, BID
     Route: 048
     Dates: start: 20090105
  7. MECORLONG [Concomitant]
     Dosage: 50 MG, QD
     Route: 048
     Dates: start: 20091104
  8. ATORIS [Concomitant]
     Dosage: 20 MG, QD
     Route: 048
     Dates: start: 20070122
  9. GLIMEGAMMA [Concomitant]
     Dosage: 2 MG, TID
     Route: 048
     Dates: start: 20101115
  10. AGAPURIN [Concomitant]
     Dosage: 400 MG, BID
     Route: 048
     Dates: start: 20070118
  11. SALURETIN (CHLORTHALIDONE) [Concomitant]
     Dosage: 25 MG, QD
     Route: 048
     Dates: start: 20070118
  12. ASPIRIN [Concomitant]
     Dosage: 100 MG, QD
     Dates: start: 20070118

REACTIONS (1)
  - Asthma [Recovered/Resolved]
